FAERS Safety Report 21046447 (Version 2)
Quarter: 2022Q3

REPORT INFORMATION
  Report Type: Report from Study
  Country: US (occurrence: US)
  Receive Date: 20220706
  Receipt Date: 20220711
  Transmission Date: 20221027
  Serious: Yes (Hospitalization)
  Sender: FDA-Public Use
  Company Number: US-JNJFOC-20220529010

PATIENT
  Age: 76 Year
  Sex: Female
  Weight: 65.9 kg

DRUGS (5)
  1. MACITENTAN [Suspect]
     Active Substance: MACITENTAN
     Indication: Pulmonary arterial hypertension
     Route: 048
     Dates: start: 20220405
  2. SELEXIPAG [Suspect]
     Active Substance: SELEXIPAG
     Indication: Pulmonary arterial hypertension
     Route: 048
  3. SELEXIPAG [Suspect]
     Active Substance: SELEXIPAG
     Route: 048
     Dates: start: 20220705
  4. ADEMPAS [Concomitant]
     Active Substance: RIOCIGUAT
     Dates: start: 20220602
  5. WARFARIN [Concomitant]
     Active Substance: WARFARIN

REACTIONS (5)
  - Pleural effusion [Recovering/Resolving]
  - Peripheral swelling [Recovering/Resolving]
  - Hypotension [Unknown]
  - Dyspnoea [Unknown]
  - Oxygen saturation decreased [Unknown]

NARRATIVE: CASE EVENT DATE: 20220401
